FAERS Safety Report 5711136-7 (Version None)
Quarter: 2008Q2

REPORT INFORMATION
  Report Type: 
  Country: None (occurrence: None)
  Receive Date: 20080415
  Receipt Date: 20080331
  Transmission Date: 20081010
  Serious: Yes (Hospitalization)
  Sender: FDA-Public Use
  Company Number: 230073J08GBR

PATIENT
  Sex: Female

DRUGS (1)
  1. REBIF [Suspect]
     Indication: MULTIPLE SCLEROSIS
     Dosage: 44 MCG, 3 IN 1 WEEKS, SUBUTANEOUS
     Route: 058
     Dates: start: 20040101

REACTIONS (5)
  - INFLAMMATION [None]
  - INJECTION SITE ABSCESS [None]
  - INJECTION SITE REACTION [None]
  - PARAESTHESIA ORAL [None]
  - WRONG TECHNIQUE IN DRUG USAGE PROCESS [None]
